FAERS Safety Report 18220947 (Version 11)
Quarter: 2021Q1

REPORT INFORMATION
  Report Type: Spontaneous
  Country: IL (occurrence: IL)
  Receive Date: 20200902
  Receipt Date: 20210301
  Transmission Date: 20210419
  Serious: Yes (Hospitalization, Other)
  Sender: FDA-Public Use
  Company Number: IL-ALEXION-A202012453

PATIENT
  Age: 8 Month
  Sex: Female
  Weight: 4.1 kg

DRUGS (4)
  1. FOLIC ACID. [Concomitant]
     Active Substance: FOLIC ACID
     Indication: PRODUCT USED FOR UNKNOWN INDICATION
     Dosage: UNK
     Route: 065
  2. KANUMA [Suspect]
     Active Substance: SEBELIPASE ALFA
     Dosage: 5 MG/KG
     Route: 042
     Dates: start: 20210117
  3. KANUMA [Suspect]
     Active Substance: SEBELIPASE ALFA
     Indication: LYSOSOMAL ACID LIPASE DEFICIENCY
     Dosage: 5 MG/KG
     Route: 042
     Dates: start: 20200719
  4. FENISTIL [Concomitant]
     Active Substance: DIMETHINDENE
     Indication: PRODUCT USED FOR UNKNOWN INDICATION
     Route: 065

REACTIONS (19)
  - Viral infection [Unknown]
  - Condition aggravated [Recovered/Resolved]
  - Flushing [Recovered/Resolved]
  - Decreased appetite [Recovered/Resolved]
  - Rhinorrhoea [Recovered/Resolved]
  - Low density lipoprotein increased [Recovering/Resolving]
  - Restlessness [Recovered/Resolved]
  - Diarrhoea [Recovered/Resolved]
  - High density lipoprotein decreased [Recovering/Resolving]
  - Gamma-glutamyltransferase increased [Unknown]
  - Supraventricular tachycardia [Recovered/Resolved]
  - Pyrexia [Recovered/Resolved]
  - Albumin globulin ratio decreased [Unknown]
  - SARS-CoV-2 test negative [Unknown]
  - Heart rate increased [Recovered/Resolved]
  - Hepatic enzyme abnormal [Not Recovered/Not Resolved]
  - Alanine aminotransferase abnormal [Recovered/Resolved]
  - Aspartate aminotransferase increased [Recovered/Resolved]
  - Weight increased [Unknown]

NARRATIVE: CASE EVENT DATE: 20200726
